FAERS Safety Report 7935252-4 (Version None)
Quarter: 2011Q4

REPORT INFORMATION
  Report Type: 
  Country: None (occurrence: None)
  Receive Date: 20111122
  Receipt Date: 20111117
  Transmission Date: 20120403
  Serious: Yes (Hospitalization, Other)
  Sender: FDA-Public Use
  Company Number: US-PFIZER INC-2011129989

PATIENT
  Sex: Male

DRUGS (1)
  1. LIPITOR [Suspect]
     Dosage: UNK

REACTIONS (10)
  - ARTHRALGIA [None]
  - CARDIAC MYXOMA [None]
  - WHEEZING [None]
  - GAIT DISTURBANCE [None]
  - IMPAIRED HEALING [None]
  - LIMB DISCOMFORT [None]
  - PAIN [None]
  - CARDIAC OPERATION [None]
  - BLOOD CHOLESTEROL INCREASED [None]
  - MYALGIA [None]
